FAERS Safety Report 21469578 (Version 2)
Quarter: 2022Q4

REPORT INFORMATION
  Report Type: Other
  Country: US (occurrence: None)
  Receive Date: 20221018
  Receipt Date: 20221019
  Transmission Date: 20230112
  Serious: Yes (Other)
  Sender: FDA-Public Use
  Company Number: US-ROCHE-3198425

PATIENT
  Age: 14 Year
  Sex: Female
  Weight: 38.2 kg

DRUGS (2)
  1. NUTROPIN [Suspect]
     Active Substance: SOMATROPIN
     Indication: Growth hormone deficiency
     Dosage: 2.0 MG SQ 6X/WK
     Route: 058
  2. NUTROPIN [Suspect]
     Active Substance: SOMATROPIN

REACTIONS (4)
  - Constipation [Unknown]
  - Failure to thrive [Unknown]
  - Hypotonia [Unknown]
  - Asthenia [Unknown]
